FAERS Safety Report 11052840 (Version 1)
Quarter: 2015Q2

REPORT INFORMATION
  Report Type: Spontaneous
  Country: US (occurrence: None)
  Receive Date: 20150420
  Receipt Date: 20150420
  Transmission Date: 20150821
  Serious: Yes (Other)
  Sender: FDA-Public Use
  Company Number: None

PATIENT
  Age: 60 Year
  Sex: Male
  Weight: 97.52 kg

DRUGS (3)
  1. OFIRMEV [Suspect]
     Active Substance: ACETAMINOPHEN
     Indication: PAIN MANAGEMENT
     Route: 042
     Dates: start: 20141124
  2. OFIRMEV [Suspect]
     Active Substance: ACETAMINOPHEN
     Indication: DRUG INEFFECTIVE
     Route: 042
     Dates: start: 20141124
  3. OFIRMEV [Suspect]
     Active Substance: ACETAMINOPHEN
     Route: 042
     Dates: start: 20141124

REACTIONS (3)
  - Gout [None]
  - Hypoaesthesia [None]
  - Radiculopathy [None]

NARRATIVE: CASE EVENT DATE: 20141125
